FAERS Safety Report 9485662 (Version 1)
Quarter: 2013Q3

REPORT INFORMATION
  Report Type: Spontaneous
  Country: CH (occurrence: CH)
  Receive Date: 20130829
  Receipt Date: 20130829
  Transmission Date: 20140515
  Serious: Yes (Other)
  Sender: FDA-Public Use
  Company Number: CH-ROCHE-1265410

PATIENT
  Age: 51 Year
  Sex: Male
  Weight: 88 kg

DRUGS (11)
  1. VALIUM [Suspect]
     Indication: PRODUCT USED FOR UNKNOWN INDICATION
     Route: 048
     Dates: start: 201304
  2. VALIUM [Interacting]
     Dosage: DOSE REDUCED
     Route: 048
     Dates: start: 20130520, end: 20130524
  3. CIPRALEX [Interacting]
     Indication: PRODUCT USED FOR UNKNOWN INDICATION
     Dosage: FORM: TABLETS, TONGUE SOLUBLE
     Route: 065
  4. LITHIOFOR [Interacting]
     Indication: PRODUCT USED FOR UNKNOWN INDICATION
     Dosage: FREQ: EVERY 2 DAYS, DOSE INCREASED
     Route: 048
  5. DIPIPERON [Interacting]
     Indication: PRODUCT USED FOR UNKNOWN INDICATION
     Dosage: FREQ: EVERY 3 DAYS
     Route: 048
  6. CLOPIN ECO [Interacting]
     Indication: PRODUCT USED FOR UNKNOWN INDICATION
     Route: 048
  7. PSYCHOPAX [Interacting]
     Indication: PRODUCT USED FOR UNKNOWN INDICATION
     Route: 048
     Dates: start: 20130521, end: 20130524
  8. PANTOZOL (SWITZERLAND) [Concomitant]
     Route: 048
  9. ATROPINE SULFATE [Concomitant]
     Dosage: DRUG NAME: ^BELLAFIT N^
     Route: 048
  10. ORFIRIL LONG [Concomitant]
     Route: 048
  11. FRAGMIN [Concomitant]
     Route: 058

REACTIONS (2)
  - Depressed level of consciousness [Recovered/Resolved]
  - Drug interaction [Unknown]
